FAERS Safety Report 8614356 (Version 3)
Quarter: 2013Q1

REPORT INFORMATION
  Report Type: Spontaneous
  Country: US (occurrence: US)
  Receive Date: 20120614
  Receipt Date: 20130125
  Transmission Date: 20140127
  Serious: Yes (Other)
  Sender: FDA-Public Use
  Company Number: US-PFIZER INC-2012139124

PATIENT
  Age: 59 Year
  Sex: Female

DRUGS (1)
  1. DETROL [Suspect]
     Dosage: UNK

REACTIONS (3)
  - Urinary tract infection [Unknown]
  - Fluid retention [Unknown]
  - Drug hypersensitivity [Unknown]
